FAERS Safety Report 18858494 (Version 2)
Quarter: 2021Q1

REPORT INFORMATION
  Report Type: Other
  Country: GB (occurrence: GB)
  Receive Date: 20210208
  Receipt Date: 20210222
  Transmission Date: 20210420
  Serious: Yes (Death, Congenital Anomaly, Other)
  Sender: FDA-Public Use
  Company Number: GB-MACLEODS PHARMA UK LTD-MAC2021030046

PATIENT

DRUGS (4)
  1. EMTRICITABINE/TENOFOVIR DISOPROXIL [Suspect]
     Active Substance: EMTRICITABINE\TENOFOVIR DISOPROXIL
     Indication: PRODUCT USED FOR UNKNOWN INDICATION
     Dosage: 1 DOSAGE FORM, QD, TAB/CAPS, 1 COURSE, PRIOR TO CONCEPTION, FIRST TRIMESTER, START DATE: 10 NOV 2010
     Route: 064
  2. ATAZANAVIR?GENERIC AUROBINDO [Suspect]
     Active Substance: ATAZANAVIR
     Indication: PRODUCT USED FOR UNKNOWN INDICATION
     Dosage: 300 MG, QD, START DATE 05?FEB?2019, ONE COURSE, FIRST TRIMESTER, GESTATION PERIOD AT EXPOSURE 10 WEE
     Route: 064
  3. EVOTAZ [Suspect]
     Active Substance: ATAZANAVIR SULFATE\COBICISTAT
     Indication: PRODUCT USED FOR UNKNOWN INDICATION
     Dosage: 1 DOSAGE FORM, QD, 1 TAB/CAPS, 1 COURSE, PRIOR TO CONCEPTION, FIRST TRIMESTER
     Route: 064
     Dates: start: 20171014, end: 20190204
  4. RITONAVIR. [Suspect]
     Active Substance: RITONAVIR
     Indication: PRODUCT USED FOR UNKNOWN INDICATION
     Dosage: QD, 100 MG/KG/HR, 1 COURSE, FIRST TRIMESTER, GESTATION PERIOD AT EXPOSURE 10 WEEKS, START DATE: 05 F
     Route: 064

REACTIONS (2)
  - Foetal exposure during pregnancy [Unknown]
  - Spina bifida [Fatal]
